FAERS Safety Report 20215831 (Version 3)
Quarter: 2022Q2

REPORT INFORMATION
  Report Type: Report from Study
  Country: GB (occurrence: GB)
  Receive Date: 20211222
  Receipt Date: 20220411
  Transmission Date: 20220721
  Serious: Yes (Other)
  Sender: FDA-Public Use
  Company Number: GB-SAMSUNG BIOEPIS-SB-2021-13338

PATIENT
  Age: 61 Year
  Sex: Female

DRUGS (1)
  1. ETANERCEPT [Suspect]
     Active Substance: ETANERCEPT
     Indication: Rheumatoid arthritis
     Route: 058
     Dates: start: 20210514

REACTIONS (10)
  - Rheumatoid arthritis [Not Recovered/Not Resolved]
  - Breast cancer female [Unknown]
  - Postoperative wound complication [Unknown]
  - Fall [Unknown]
  - Foot fracture [Unknown]
  - Injection site haemorrhage [Unknown]
  - Tooth abscess [Unknown]
  - Infected bite [Unknown]
  - Mobility decreased [Unknown]
  - Wrong technique in product usage process [Unknown]
